FAERS Safety Report 20152564 (Version 1)
Quarter: 2021Q4

REPORT INFORMATION
  Report Type: Spontaneous
  Country: JP (occurrence: None)
  Receive Date: 20211206
  Receipt Date: 20211206
  Transmission Date: 20220304
  Serious: Yes (Death, Disabling, Other)
  Sender: FDA-Public Use
  Company Number: 2020SE12568

PATIENT
  Age: 74 Year
  Sex: Male
  Weight: 67 kg

DRUGS (8)
  1. IMFINZI [Suspect]
     Active Substance: DURVALUMAB
     Indication: Non-small cell lung cancer
     Route: 041
     Dates: start: 20191210, end: 20200107
  2. NEXIUM [Concomitant]
     Active Substance: ESOMEPRAZOLE MAGNESIUM
     Route: 048
     Dates: end: 20200830
  3. METHYLCOBALAMIN [Concomitant]
     Active Substance: METHYLCOBALAMIN
     Route: 048
     Dates: end: 20200830
  4. AMITIZA [Concomitant]
     Active Substance: LUBIPROSTONE
     Route: 048
     Dates: end: 20200830
  5. MAGNESIUM OXIDE [Concomitant]
     Active Substance: MAGNESIUM OXIDE
     Route: 048
     Dates: end: 20200830
  6. SENNOSIDES [Concomitant]
     Active Substance: SENNOSIDES
     Route: 048
     Dates: end: 20200830
  7. LIMAPROST [Concomitant]
     Active Substance: LIMAPROST
     Route: 048
     Dates: end: 20200830
  8. PICOSULFAT [Concomitant]
     Route: 048
     Dates: end: 20200830

REACTIONS (2)
  - Non-small cell lung cancer [Fatal]
  - Interstitial lung disease [Recovering/Resolving]

NARRATIVE: CASE EVENT DATE: 20200121
